FAERS Safety Report 5862338-0 (Version None)
Quarter: 2008Q3

REPORT INFORMATION
  Report Type: 
  Country: None (occurrence: None)
  Receive Date: 20080826
  Receipt Date: 20080812
  Transmission Date: 20090109
  Serious: Yes (Disabling)
  Sender: FDA-Public Use
  Company Number: 003977

PATIENT
  Sex: Female

DRUGS (8)
  1. BUSULFEX [Suspect]
     Indication: STEM CELL TRANSPLANT
     Dosage: 6 ML 46.8 ML, DAILY DOSE; INTRAVENOUS 4.2 ML, DAILY DOSE; INTRAVENOUS
     Route: 042
     Dates: start: 20080319, end: 20080319
  2. BUSULFEX [Suspect]
     Indication: STEM CELL TRANSPLANT
     Dosage: 6 ML 46.8 ML, DAILY DOSE; INTRAVENOUS 4.2 ML, DAILY DOSE; INTRAVENOUS
     Route: 042
     Dates: start: 20080320, end: 20080322
  3. BUSULFEX [Suspect]
     Indication: STEM CELL TRANSPLANT
     Dosage: 6 ML 46.8 ML, DAILY DOSE; INTRAVENOUS 4.2 ML, DAILY DOSE; INTRAVENOUS
     Route: 042
     Dates: start: 20080323, end: 20080323
  4. MELPHALAN (MELPHALAN) [Concomitant]
  5. PHENYTOIN [Concomitant]
  6. FILGRASTIM (FILGRASTIM) [Concomitant]
  7. METHOTREXATE [Concomitant]
  8. TACROLIMUS [Concomitant]

REACTIONS (9)
  - ANOREXIA [None]
  - CONVULSION [None]
  - DIARRHOEA [None]
  - ENCEPHALITIS VIRAL [None]
  - GRAFT VERSUS HOST DISEASE [None]
  - HUMAN HERPESVIRUS 6 INFECTION [None]
  - MALAISE [None]
  - SEPSIS [None]
  - STOMATITIS [None]
